FAERS Safety Report 13527231 (Version 1)
Quarter: 2017Q2

REPORT INFORMATION
  Report Type: Report from Study
  Country: CO (occurrence: CO)
  Receive Date: 20170509
  Receipt Date: 20170509
  Transmission Date: 20170830
  Serious: Yes (Hospitalization)
  Sender: FDA-Public Use
  Company Number: CO-JNJFOC-20170505444

PATIENT
  Age: 62 Year
  Sex: Male
  Weight: 150 kg

DRUGS (1)
  1. STELARA [Suspect]
     Active Substance: USTEKINUMAB
     Indication: PSORIASIS
     Route: 058
     Dates: start: 20150226

REACTIONS (5)
  - Pulmonary oedema [Unknown]
  - Influenza [Recovering/Resolving]
  - Productive cough [Recovering/Resolving]
  - Respiratory tract congestion [Not Recovered/Not Resolved]
  - Asphyxia [Recovering/Resolving]

NARRATIVE: CASE EVENT DATE: 20170414
